FAERS Safety Report 8213721-X (Version None)
Quarter: 2012Q1

REPORT INFORMATION
  Report Type: 
  Country: None (occurrence: None)
  Receive Date: 20120315
  Receipt Date: 20120307
  Transmission Date: 20120608
  Serious: Yes (Other)
  Sender: FDA-Public Use
  Company Number: US-ASTRAZENECA-2011SE47157

PATIENT
  Age: 80 Year
  Sex: Female

DRUGS (27)
  1. TOPROL-XL [Suspect]
     Indication: BLOOD PRESSURE ABNORMAL
     Route: 048
  2. AVAPRO [Concomitant]
     Route: 048
  3. LEVSIN [Concomitant]
     Route: 058
  4. MICRO-K [Concomitant]
  5. TOPROL-XL [Suspect]
     Indication: CARDIAC DISORDER
     Route: 048
  6. PERIDIUM VEGETABLE LAXATIVE [Concomitant]
  7. PHENERGAN [Concomitant]
     Dosage: HALF TO 1 PILL EVERY SIX HOURS PRN
  8. FISH OIL [Concomitant]
     Route: 048
  9. JANUVIA [Concomitant]
  10. LOTENSIN [Concomitant]
  11. NIASPAN [Concomitant]
     Indication: BLOOD CHOLESTEROL ABNORMAL
     Route: 048
  12. ZETIA [Concomitant]
     Route: 048
  13. ACTOS [Concomitant]
  14. AMLODIPINE BESYLATE [Concomitant]
     Route: 048
  15. FLONASE [Concomitant]
     Dosage: TWO SPRAYS EACH NOSTRIL ONCE A DAY
  16. CYANOCOBALAMIN [Concomitant]
  17. ERGO D SOFTGEL [Concomitant]
     Route: 048
  18. GEL BASED STOOL SOFTNER [Concomitant]
     Dosage: TWO PR EVERY DAY
  19. RANEXA [Concomitant]
     Route: 048
  20. AMITIZA [Concomitant]
  21. TMG [Concomitant]
  22. TRILIPIX [Suspect]
     Route: 065
  23. DEXILANT [Concomitant]
  24. RECLAST [Concomitant]
     Dosage: ONE INJECTION EVERY YEAR
  25. VITAMIN B-12 [Concomitant]
     Dosage: 1 CC MONTHLY
     Route: 030
  26. CRESTOR [Suspect]
     Route: 048
  27. LASIX [Concomitant]

REACTIONS (6)
  - ADVERSE EVENT [None]
  - DYSLIPIDAEMIA [None]
  - CONSTIPATION [None]
  - CARDIAC FAILURE CONGESTIVE [None]
  - TYPE 2 DIABETES MELLITUS [None]
  - ANAEMIA [None]
